FAERS Safety Report 24171969 (Version 1)
Quarter: 2024Q3

REPORT INFORMATION
  Report Type: Spontaneous
  Country: EG (occurrence: EG)
  Receive Date: 20240805
  Receipt Date: 20240805
  Transmission Date: 20241017
  Serious: Yes (Hospitalization, Other)
  Sender: NOVO NORDISK
  Company Number: EG-NOVOPROD-1260810

PATIENT
  Age: 855 Month
  Sex: Male
  Weight: 95 kg

DRUGS (2)
  1. INSULIN HUMAN [Suspect]
     Active Substance: INSULIN HUMAN
     Dosage: 30U, 15U AND 15U
     Route: 058
  2. INSULIN HUMAN [Suspect]
     Active Substance: INSULIN HUMAN
     Indication: Type 1 diabetes mellitus
     Dosage: 50U, 20U AND 20U
     Route: 058

REACTIONS (2)
  - Cardiac disorder [Unknown]
  - Blood glucose increased [Unknown]
